FAERS Safety Report 24092527 (Version 1)
Quarter: 2024Q3

REPORT INFORMATION
  Report Type: Spontaneous
  Country: US (occurrence: None)
  Receive Date: 20240712
  Receipt Date: 20240712
  Transmission Date: 20241017
  Serious: Yes (Hospitalization, Other)
  Sender: Public
  Company Number: None

PATIENT
  Age: 83 Year
  Sex: Male
  Weight: 117.93 kg

DRUGS (1)
  1. TRULICITY [Suspect]
     Active Substance: DULAGLUTIDE
     Indication: Type 2 diabetes mellitus
     Dates: end: 20240623

REACTIONS (2)
  - Blindness unilateral [None]
  - Heart rate decreased [None]

NARRATIVE: CASE EVENT DATE: 20240624
